FAERS Safety Report 9379864 (Version 1)
Quarter: 2013Q2

REPORT INFORMATION
  Report Type: Spontaneous
  Country: US (occurrence: None)
  Receive Date: 20130627
  Receipt Date: 20130627
  Transmission Date: 20140414
  Serious: Yes (Other)
  Sender: FDA-Public Use
  Company Number: 1762821

PATIENT
  Age: 74 Year
  Sex: Female
  Weight: 70.45 kg

DRUGS (8)
  1. OXALIPLATIN [Suspect]
     Indication: PRODUCT USED FOR UNKNOWN INDICATION
     Dosage: TOTAL 221 MG, 1 WEEK
     Route: 041
     Dates: start: 20130613, end: 20130613
  2. DEXTROSE [Concomitant]
  3. ALOXI [Concomitant]
  4. DECADRON /00016001/ [Concomitant]
  5. XELODA [Concomitant]
  6. ATENOLOL [Concomitant]
  7. CRESTOR [Concomitant]
  8. NEXIUM /001479302/ [Concomitant]

REACTIONS (7)
  - Gait disturbance [None]
  - Speech disorder [None]
  - Dizziness [None]
  - Dizziness [None]
  - Muscle spasms [None]
  - Feeling abnormal [None]
  - Neurological symptom [None]
